FAERS Safety Report 21650151 (Version 1)
Quarter: 2022Q4

REPORT INFORMATION
  Report Type: Spontaneous
  Country: JP (occurrence: JP)
  Receive Date: 20221128
  Receipt Date: 20221128
  Transmission Date: 20230113
  Serious: Yes (Other)
  Sender: FDA-Public Use
  Company Number: JP-MYLANLABS-2022M1127449

PATIENT
  Age: 65 Year

DRUGS (2)
  1. LYRICA [Suspect]
     Active Substance: PREGABALIN
     Indication: Product used for unknown indication
     Dosage: UNK MILLIGRAM
     Route: 048
  2. LYRICA [Suspect]
     Active Substance: PREGABALIN
     Indication: Product used for unknown indication
     Dosage: THE DAILY DOSE IS 425 MG DIVIDED INTO 4 TIMES
     Route: 048

REACTIONS (3)
  - Angina pectoris [Unknown]
  - Inappropriate schedule of product administration [Unknown]
  - Drug resistance [Unknown]
